FAERS Safety Report 23317481 (Version 1)
Quarter: 2023Q4

REPORT INFORMATION
  Report Type: Spontaneous
  Country: JP (occurrence: JP)
  Receive Date: 20231219
  Receipt Date: 20231219
  Transmission Date: 20240109
  Serious: Yes (Other)
  Sender: FDA-Public Use
  Company Number: JP-ONO-2023JP031061

PATIENT

DRUGS (1)
  1. OPDIVO [Suspect]
     Active Substance: NIVOLUMAB
     Indication: Gastric cancer
     Dosage: UNK
     Route: 041

REACTIONS (5)
  - Diabetes mellitus [Unknown]
  - Hypothyroidism [Unknown]
  - Interstitial lung disease [Unknown]
  - Dermatitis acneiform [Unknown]
  - Rash [Unknown]
